FAERS Safety Report 25002154 (Version 3)
Quarter: 2025Q2

REPORT INFORMATION
  Report Type: Spontaneous
  Country: US (occurrence: US)
  Receive Date: 20250224
  Receipt Date: 20250609
  Transmission Date: 20250717
  Serious: No
  Sender: SANOFI AVENTIS
  Company Number: US-SA-2025SA054178

PATIENT
  Age: 58 Year
  Sex: Female

DRUGS (3)
  1. DUPIXENT [Suspect]
     Active Substance: DUPILUMAB
     Indication: Asthma
     Dosage: 300 MG, QOW
     Route: 058
     Dates: start: 20241220
  2. DUPIXENT [Suspect]
     Active Substance: DUPILUMAB
     Indication: Nasal polyps
  3. DUPIXENT [Suspect]
     Active Substance: DUPILUMAB
     Indication: Eczema

REACTIONS (13)
  - COVID-19 [Unknown]
  - Pyrexia [Unknown]
  - Productive cough [Unknown]
  - Nasal congestion [Unknown]
  - Pain [Unknown]
  - Headache [Unknown]
  - Fatigue [Unknown]
  - Injection site pain [Recovered/Resolved]
  - Product preparation error [Recovered/Resolved]
  - Dermatitis atopic [Recovered/Resolved]
  - Eczema [Unknown]
  - Drug ineffective [Unknown]
  - Incorrect dose administered [Unknown]

NARRATIVE: CASE EVENT DATE: 20241220
